FAERS Safety Report 5907903-7 (Version None)
Quarter: 2008Q4

REPORT INFORMATION
  Report Type: 
  Country: None (occurrence: None)
  Receive Date: 20081003
  Receipt Date: 20080922
  Transmission Date: 20090506
  Serious: Yes (Other)
  Sender: FDA-Public Use
  Company Number: US-ELI_LILLY_AND_COMPANY-US200809005101

PATIENT
  Sex: Female
  Weight: 55.78 kg

DRUGS (10)
  1. FORTEO [Suspect]
     Dosage: 20 UG, DAILY (1/D)
     Route: 058
     Dates: start: 20050101, end: 20050101
  2. FORTEO [Suspect]
     Dosage: 20 UG, DAILY (1/D)
     Route: 058
     Dates: start: 20070518
  3. CARDIZEM [Concomitant]
     Dosage: 240 MG, DAILY (1/D)
     Route: 048
  4. SPIRONOLACTONE [Concomitant]
     Dosage: 50 MG, DAILY (1/D)
  5. CLONIDINE [Concomitant]
     Dosage: 0.1 MG, 2/D
  6. CALTRATE [Concomitant]
     Dosage: 350 MG, 3/D
  7. MAGNESIUM OXIDE [Concomitant]
     Dosage: 800 MG, DAILY (1/D)
     Route: 048
  8. MULTI-VITAMIN [Concomitant]
     Dosage: UNK, DAILY (1/D)
  9. TRAMADOL HCL [Concomitant]
     Dosage: 30 MG, AS NEEDED
     Route: 048
  10. RHINOCORT [Concomitant]
     Dosage: UNK, AS NEEDED

REACTIONS (6)
  - ABDOMINAL STRANGULATED HERNIA [None]
  - ARTHRALGIA [None]
  - ARTHRITIS [None]
  - CHRONIC OBSTRUCTIVE PULMONARY DISEASE [None]
  - FEMORAL NECK FRACTURE [None]
  - KYPHOSIS [None]
